FAERS Safety Report 8012007-6 (Version None)
Quarter: 2011Q4

REPORT INFORMATION
  Report Type: 
  Country: None (occurrence: None)
  Receive Date: 20111228
  Receipt Date: 20111121
  Transmission Date: 20120403
  Serious: Yes (Hospitalization)
  Sender: FDA-Public Use
  Company Number: DE-GLAXOSMITHKLINE-B0765469A

PATIENT
  Sex: Female
  Weight: 64 kg

DRUGS (2)
  1. PAZOPANIB [Suspect]
     Indication: SARCOMA
     Route: 048
     Dates: start: 20111031
  2. GEMCITABINE [Suspect]
     Indication: SARCOMA
     Route: 065
     Dates: start: 20111031

REACTIONS (1)
  - PNEUMOTHORAX [None]
